FAERS Safety Report 20862989 (Version 2)
Quarter: 2022Q2

REPORT INFORMATION
  Report Type: Report from Study
  Country: US (occurrence: US)
  Receive Date: 20220523
  Receipt Date: 20220623
  Transmission Date: 20220720
  Serious: Yes (Hospitalization, Other)
  Sender: FDA-Public Use
  Company Number: US-TAKEDA-2021TUS068315

PATIENT
  Age: 50 Year
  Sex: Female
  Weight: 66 kg

DRUGS (7)
  1. MOBOCERTINIB [Suspect]
     Active Substance: MOBOCERTINIB
     Indication: Lung neoplasm malignant
     Dosage: 40 MILLIGRAM, QID
     Route: 065
     Dates: start: 20211026
  2. LORAZEPAM [Concomitant]
     Active Substance: LORAZEPAM
     Dosage: UNK
     Route: 065
  3. METOPROLOL [Concomitant]
     Active Substance: METOPROLOL
     Dosage: 25 MILLIGRAM
     Route: 065
  4. PREDNISONE [Concomitant]
     Active Substance: PREDNISONE
     Dosage: UNK
     Route: 065
  5. HYDROMORPHONE [Concomitant]
     Active Substance: HYDROMORPHONE
     Indication: Pain
     Dosage: 4 MILLIGRAM
     Route: 065
  6. ONDANSETRON [Concomitant]
     Active Substance: ONDANSETRON
     Indication: Nausea
     Dosage: UNK
     Route: 065
  7. IMODIUM [Concomitant]
     Active Substance: LOPERAMIDE HYDROCHLORIDE
     Indication: Diarrhoea
     Dosage: UNK
     Route: 065

REACTIONS (7)
  - Syncope [Not Recovered/Not Resolved]
  - Headache [Not Recovered/Not Resolved]
  - Rash pruritic [Unknown]
  - Dry skin [Unknown]
  - Diarrhoea [Unknown]
  - Nausea [Unknown]
  - Vomiting [Unknown]

NARRATIVE: CASE EVENT DATE: 20220301
